FAERS Safety Report 10313396 (Version 1)
Quarter: 2014Q3

REPORT INFORMATION
  Report Type: Spontaneous
  Country: FR (occurrence: None)
  Receive Date: 20140716
  Receipt Date: 20140716
  Transmission Date: 20150326
  Serious: Yes (Life-Threatening, Hospitalization)
  Sender: FDA-Public Use
  Company Number: SYM-2014-22999

PATIENT
  Age: 69 Year
  Sex: Female

DRUGS (14)
  1. NALBUPHINE [Concomitant]
     Active Substance: NALBUPHINE
  2. PARACETAMOL [Concomitant]
     Active Substance: ACETAMINOPHEN
  3. FOSFOMYCIN [Suspect]
     Active Substance: FOSFOMYCIN
     Indication: MENINGEAL DISORDER
     Dosage: INTRAVENOUS (NOT OTHERWISE SPECIFIED)
     Route: 042
     Dates: start: 20131204, end: 20131220
  4. ZOPHREN(ONDANSETRON) [Concomitant]
  5. SMECTA [Concomitant]
     Active Substance: MONTMORILLONITE
  6. CIFLOX [Suspect]
     Active Substance: CIPROFLOXACIN
     Indication: MENINGEAL DISORDER
     Dosage: INTRAVENOUS(NOT OTHERWISE SPECIFIED)
     Route: 042
     Dates: start: 20131204, end: 20131217
  7. URBANYL(CLOBAZAM) [Concomitant]
  8. KEPPRA(LEVETIRACETAM0 [Concomitant]
  9. SEROPLEX(ESCITALOPRAM OXALATE)(ESCITALOPRAM OXALATE) [Concomitant]
  10. ATARAX(HYDROXYZINE) [Concomitant]
  11. METRONIDAZOLE. [Suspect]
     Active Substance: METRONIDAZOLE
     Dosage: INTRAVENOUS(NOT OTHERWISE SPECIFIED)
     Route: 042
     Dates: start: 20131207, end: 20131210
  12. CARBAMAZEPINE(CARBAMAZEPINE) [Concomitant]
  13. VIMPAT(LACOSAMIDE)(LACOSAMIDE) [Concomitant]
  14. CEFTRIAXONE. [Suspect]
     Active Substance: CEFTRIAXONE
     Dosage: INTRAVENOUS (NOT OTHERWISE SPECIFIED)
     Route: 042
     Dates: start: 20131204, end: 20131217

REACTIONS (5)
  - Blood culture positive [None]
  - Hypotension [None]
  - Candida infection [None]
  - Blood pressure increased [None]
  - Systemic candida [None]

NARRATIVE: CASE EVENT DATE: 201401
